FAERS Safety Report 13052209 (Version 1)
Quarter: 2016Q4

REPORT INFORMATION
  Report Type: Spontaneous
  Country: FR (occurrence: FR)
  Receive Date: 20161221
  Receipt Date: 20161221
  Transmission Date: 20170207
  Serious: Yes (Other)
  Sender: FDA-Public Use
  Company Number: FR-MYLANLABS-2016M1045747

PATIENT

DRUGS (5)
  1. VERAPAMIL MYLAN L.P. 120 MG, COMPRIM? PELLICUL? ? LIB?RATION PROLONG?E [Suspect]
     Active Substance: VERAPAMIL HYDROCHLORIDE
     Indication: ATRIAL FIBRILLATION
     Dosage: 1 DF, QD
  2. TANGANIL [Concomitant]
     Active Substance: ACETYLLEUCINE
     Indication: DIZZINESS
     Dosage: UNK
     Dates: start: 2016
  3. SURBRONC [Concomitant]
     Active Substance: AMBROXOL HYDROCHLORIDE
     Indication: BRONCHITIS CHRONIC
     Dosage: UNK
     Dates: start: 2010
  4. DELURSAN [Concomitant]
     Active Substance: URSODIOL
     Indication: CHOLELITHIASIS
     Dosage: UNK
  5. PYOSTACINE [Concomitant]
     Active Substance: PRISTINAMYCIN
     Indication: PROPHYLAXIS
     Dosage: UNK

REACTIONS (16)
  - Hypoaesthesia [Unknown]
  - Vision blurred [Unknown]
  - Osteoarthritis [Unknown]
  - Hepatic pain [Unknown]
  - Malaise [Unknown]
  - Cough [Unknown]
  - Constipation [Unknown]
  - Asthenia [Unknown]
  - Bradycardia [Unknown]
  - Headache [Unknown]
  - Vomiting [Unknown]
  - Somnolence [Unknown]
  - Dizziness [Unknown]
  - Nausea [Unknown]
  - Hypotension [Unknown]
  - Tinnitus [Unknown]
